FAERS Safety Report 4517534-1 (Version None)
Quarter: 2004Q4

REPORT INFORMATION
  Report Type: 
  Country: None (occurrence: None)
  Receive Date: 20041203
  Receipt Date: 20041123
  Transmission Date: 20050328
  Serious: Yes (Hospitalization)
  Sender: FDA-Public Use
  Company Number: BE-ABBOTT-04P-013-0281281-00

PATIENT
  Sex: Male

DRUGS (2)
  1. HUMIRA [Suspect]
     Indication: RHEUMATOID ARTHRITIS
     Route: 058
     Dates: start: 20040617
  2. FLU VACCINATION [Concomitant]
     Indication: INFLUENZA IMMUNISATION

REACTIONS (3)
  - PYREXIA [None]
  - RHEUMATOID ARTHRITIS [None]
  - VACCINATION COMPLICATION [None]
